FAERS Safety Report 9655160 (Version 2)
Quarter: 2013Q4

REPORT INFORMATION
  Report Type: Spontaneous
  Country: US (occurrence: US)
  Receive Date: 20131029
  Receipt Date: 20131029
  Transmission Date: 20140711
  Serious: Yes (Other)
  Sender: FDA-Public Use
  Company Number: US-NAPPMUNDI-USA-2012-0084213

PATIENT
  Age: 45 Year
  Sex: Female
  Weight: 86.17 kg

DRUGS (1)
  1. OXYCONTIN (NDA 22-272) [Suspect]
     Indication: PAIN
     Dosage: 10 MG, UNK
     Dates: start: 20120308

REACTIONS (1)
  - Hallucination [Recovered/Resolved]
